FAERS Safety Report 18181400 (Version 2)
Quarter: 2020Q3

REPORT INFORMATION
  Report Type: Report from Study
  Country: FR (occurrence: FR)
  Receive Date: 20200821
  Receipt Date: 20200824
  Transmission Date: 20201103
  Serious: Yes (Other)
  Sender: FDA-Public Use
  Company Number: FR-ACTELION-A-CH2020-203809

PATIENT
  Age: 74 Year
  Sex: Female
  Weight: 59 kg

DRUGS (8)
  1. UPTRAVI [Suspect]
     Active Substance: SELEXIPAG
     Dosage: 1000 MCG, BID
     Route: 048
     Dates: start: 20200524
  2. UPTRAVI [Suspect]
     Active Substance: SELEXIPAG
     Dosage: 800 MCG, BID
     Route: 048
     Dates: start: 20200517
  3. UPTRAVI [Suspect]
     Active Substance: SELEXIPAG
     Dosage: 200 ?G, BID
     Route: 048
     Dates: start: 20200317
  4. UPTRAVI [Suspect]
     Active Substance: SELEXIPAG
     Dosage: 600 MCG, BID
     Route: 048
     Dates: start: 20200331
  5. UPTRAVI [Suspect]
     Active Substance: SELEXIPAG
     Dosage: 1200 MCG, BID
     Route: 048
     Dates: start: 20200715
  6. SILDENAFIL. [Concomitant]
     Active Substance: SILDENAFIL
     Indication: PULMONARY ARTERIAL HYPERTENSION
  7. UPTRAVI [Suspect]
     Active Substance: SELEXIPAG
     Indication: PULMONARY ARTERIAL HYPERTENSION
     Dosage: 400 ?G, BID
     Route: 048
     Dates: start: 20200324
  8. BOSENTAN. [Concomitant]
     Active Substance: BOSENTAN
     Indication: PULMONARY ARTERIAL HYPERTENSION

REACTIONS (24)
  - Insomnia [Recovered/Resolved]
  - Electrocardiogram abnormal [Not Recovered/Not Resolved]
  - Ocular discomfort [Not Recovered/Not Resolved]
  - Pain in jaw [Not Recovered/Not Resolved]
  - Dental discomfort [Recovered/Resolved]
  - Fatigue [Not Recovered/Not Resolved]
  - Gout [Unknown]
  - Somnolence [Recovered/Resolved]
  - Stress [Recovered/Resolved]
  - Pain [Unknown]
  - Muscle spasms [Recovered/Resolved]
  - Pruritus [Not Recovered/Not Resolved]
  - Tinnitus [Recovered/Resolved]
  - Oxygen therapy [Recovered/Resolved]
  - Cataract operation [Recovered/Resolved]
  - Flushing [Not Recovered/Not Resolved]
  - Eye pain [Recovered/Resolved]
  - Headache [Not Recovered/Not Resolved]
  - Nervousness [Recovered/Resolved]
  - Palpitations [Recovered/Resolved]
  - Nightmare [Not Recovered/Not Resolved]
  - Diarrhoea [Not Recovered/Not Resolved]
  - Inappropriate schedule of product administration [Recovered/Resolved]
  - Dyspnoea [Unknown]

NARRATIVE: CASE EVENT DATE: 20200317
